FAERS Safety Report 12791723 (Version 1)
Quarter: 2016Q3

REPORT INFORMATION
  Report Type: Spontaneous
  Country: US (occurrence: US)
  Receive Date: 20160926
  Receipt Date: 20160926
  Transmission Date: 20161109
  Serious: Yes (Disabling)
  Sender: FDA-Public Use
  Company Number: None

PATIENT
  Age: 37 Year
  Sex: Male
  Weight: 79.45 kg

DRUGS (3)
  1. DEPAKOTE ER [Concomitant]
     Active Substance: DIVALPROEX SODIUM
  2. AMBIEN [Concomitant]
     Active Substance: ZOLPIDEM TARTRATE
  3. RISPERDAL [Suspect]
     Active Substance: RISPERIDONE
     Indication: PRODUCT USED FOR UNKNOWN INDICATION
     Route: 048
     Dates: end: 20150503

REACTIONS (3)
  - Visual impairment [None]
  - Lacrimal disorder [None]
  - Dry eye [None]

NARRATIVE: CASE EVENT DATE: 20000108
